FAERS Safety Report 7688576 (Version 2)
Quarter: 2014Q3

REPORT INFORMATION
  Report Type: Spontaneous
  Country: US (occurrence: None)
  Receive Date: 20100203
  Receipt Date: 20140702
  Transmission Date: 20150326
  Serious: Yes (Other)
  Sender: FDA-Public Use
  Company Number: 2009S1005289

PATIENT
  Age: 53 Year
  Sex: Male
  Weight: 88.45 kg

DRUGS (4)
  1. EZ PREP (EZ PREP) (75 MILLILITRE (S), ORAL SOLUTION) [Suspect]
     Active Substance: SODIUM PHOSPHATE, MONOBASIC, MONOHYDRATE
     Indication: COLONOSCOPY
     Dosage: 75 ML;TOTAL;PO
     Route: 048
     Dates: start: 20080625, end: 20080625
  2. ASPIRIN. [Concomitant]
     Active Substance: ASPIRIN
  3. ZESTRIL (LISINOPRIL) [Concomitant]
  4. HYDROCHLOROTHIAZIDE (HYDROCHLOROTHIAZIDE) [Concomitant]
     Active Substance: HYDROCHLOROTHIAZIDE

REACTIONS (3)
  - Glomerular filtration rate decreased [None]
  - Renal disorder [None]
  - Blood creatinine increased [None]

NARRATIVE: CASE EVENT DATE: 20080709
